FAERS Safety Report 19184526 (Version 3)
Quarter: 2021Q3

REPORT INFORMATION
  Report Type: Spontaneous
  Country: US (occurrence: US)
  Receive Date: 20210427
  Receipt Date: 20210929
  Transmission Date: 20211014
  Serious: Yes (Hospitalization, Other)
  Sender: FDA-Public Use
  Company Number: US-AMGEN-USASP2021062304

PATIENT
  Age: 58 Year
  Sex: Female

DRUGS (5)
  1. CLONAZEPAM. [Concomitant]
     Active Substance: CLONAZEPAM
  2. SUMATRIPTAN. [Concomitant]
     Active Substance: SUMATRIPTAN
  3. OTEZLA [Suspect]
     Active Substance: APREMILAST
     Indication: PSORIATIC ARTHROPATHY
     Dosage: 30 MILLIGRAM, BID
     Route: 048
     Dates: start: 20210325, end: 2021
  4. MELOXICAM. [Concomitant]
     Active Substance: MELOXICAM
  5. NITROFURANTIN [Concomitant]
     Active Substance: NITROFURANTOIN

REACTIONS (8)
  - Nephrolithiasis [Not Recovered/Not Resolved]
  - Headache [Not Recovered/Not Resolved]
  - Diarrhoea [Not Recovered/Not Resolved]
  - Nausea [Not Recovered/Not Resolved]
  - Kidney infection [Recovered/Resolved]
  - Muscle spasms [Not Recovered/Not Resolved]
  - Urinary tract infection [Recovered/Resolved]
  - Dehydration [Not Recovered/Not Resolved]

NARRATIVE: CASE EVENT DATE: 2021
